FAERS Safety Report 9439904 (Version 1)
Quarter: 2013Q3

REPORT INFORMATION
  Report Type: Spontaneous
  Country: US (occurrence: US)
  Receive Date: 20130805
  Receipt Date: 20130805
  Transmission Date: 20140515
  Serious: No
  Sender: FDA-Public Use
  Company Number: US-PFIZER INC-2013224052

PATIENT
  Age: 74 Year
  Sex: Female
  Weight: 51.7 kg

DRUGS (8)
  1. CARDIZEM [Suspect]
  2. NEURONTIN [Suspect]
  3. LISINOPRIL [Suspect]
  4. MORPHINE SULFATE [Suspect]
  5. AMITRIPTYLINE [Suspect]
  6. MEPERIDINE [Suspect]
  7. ACETAMINOPHEN W/HYDROCODONE BITARTRATE [Suspect]
  8. OXYBUTYNIN [Suspect]

REACTIONS (1)
  - Drug hypersensitivity [Unknown]
